FAERS Safety Report 7583100-7 (Version None)
Quarter: 2011Q2

REPORT INFORMATION
  Report Type: 
  Country: None (occurrence: None)
  Receive Date: 20110623
  Receipt Date: 20110617
  Transmission Date: 20111010
  Serious: Yes (Other)
  Sender: FDA-Public Use
  Company Number: WAES 1105USA03505

PATIENT
  Age: 75 Year
  Sex: Male

DRUGS (1)
  1. JANUVIA [Suspect]
     Indication: TYPE 2 DIABETES MELLITUS
     Dosage: 100 MG/DAILY PO
     Route: 048
     Dates: start: 20100120, end: 20110607

REACTIONS (4)
  - HAEMOGLOBIN DECREASED [None]
  - WEIGHT DECREASED [None]
  - DIARRHOEA [None]
  - CHANGE OF BOWEL HABIT [None]
